FAERS Safety Report 7316959-9 (Version None)
Quarter: 2011Q1

REPORT INFORMATION
  Report Type: 
  Country: None (occurrence: None)
  Receive Date: 20110226
  Receipt Date: 20100908
  Transmission Date: 20110831
  Serious: No
  Sender: FDA-Public Use
  Company Number: US-ALLERGAN-1011601US

PATIENT
  Sex: Female

DRUGS (3)
  1. BACLOFEN [Concomitant]
  2. MULTI-VITAMIN [Concomitant]
     Indication: PRODUCT USED FOR UNKNOWN INDICATION
  3. BOTOXA? [Suspect]
     Indication: MUSCLE SPASTICITY
     Dosage: 190 UNITS, SINGLE
     Dates: start: 20100901, end: 20100901

REACTIONS (1)
  - INJECTION SITE PAIN [None]
